FAERS Safety Report 21191311 (Version 1)
Quarter: 2022Q3

REPORT INFORMATION
  Report Type: Spontaneous
  Country: US (occurrence: None)
  Receive Date: 20220809
  Receipt Date: 20220809
  Transmission Date: 20221027
  Serious: Yes (Hospitalization)
  Sender: FDA-Public Use
  Company Number: None

PATIENT
  Age: 76 Year
  Sex: Male
  Weight: 96.3 kg

DRUGS (1)
  1. KIMYRSA [Suspect]
     Active Substance: ORITAVANCIN DIPHOSPHATE
     Indication: Back pain
     Dosage: OTHER FREQUENCY : X1,MR AFTER 14DAYS;?
     Route: 041
     Dates: start: 20220602, end: 20220621

REACTIONS (6)
  - Back pain [None]
  - Muscle spasms [None]
  - Chills [None]
  - Tremor [None]
  - Blood pressure increased [None]
  - Treatment noncompliance [None]

NARRATIVE: CASE EVENT DATE: 20220621
